FAERS Safety Report 17035649 (Version 1)
Quarter: 2019Q4

REPORT INFORMATION
  Report Type: Spontaneous
  Country: PL (occurrence: PL)
  Receive Date: 20191115
  Receipt Date: 20191115
  Transmission Date: 20200122
  Serious: Yes (Hospitalization)
  Sender: FDA-Public Use
  Company Number: PL-SCIEGEN PHARMACEUTICALS INC-2019SCILIT00352

PATIENT
  Age: 21 Year
  Sex: Female
  Weight: 43.7 kg

DRUGS (1)
  1. METFORMIN HYDROCHLORIDETABLETS [Suspect]
     Active Substance: METFORMIN HYDROCHLORIDE

REACTIONS (4)
  - Insulin resistance [Unknown]
  - Condition aggravated [Unknown]
  - Paradoxical drug reaction [Unknown]
  - Off label use [Unknown]
